FAERS Safety Report 26151719 (Version 1)
Quarter: 2025Q4

REPORT INFORMATION
  Report Type: Spontaneous
  Country: US (occurrence: None)
  Receive Date: 20251118
  Receipt Date: 20251118
  Transmission Date: 20260118
  Serious: Yes (Death)
  Sender: FDA-CTU
  Company Number: None

PATIENT
  Age: 59 Year
  Sex: Male
  Weight: 120.2 kg

DRUGS (7)
  1. ENBREL [Suspect]
     Active Substance: ETANERCEPT
     Dosage: 1 MILLILITER SUBCUTANEOUS EVERY WE     INJECTION
     Route: 058
     Dates: start: 20180806, end: 20190225
  2. TEMODAR [Suspect]
     Active Substance: TEMOZOLOMIDE
  3. AVASTIN [Suspect]
     Active Substance: BEVACIZUMAB
  4. METFORMIN [Concomitant]
     Active Substance: METFORMIN HYDROCHLORIDE
  5. morphine (MS Cantin 15 mg/12 hr oral tablet, extended release) [Concomitant]
  6. spironolactone (spironolactone 25 mg oral tablet) [Concomitant]
  7. ACETAMINOPHEN\HYDROCODONE [Concomitant]
     Active Substance: ACETAMINOPHEN\HYDROCODONE

REACTIONS (11)
  - Glioblastoma multiforme [None]
  - Immunosuppression [None]
  - Osteoarthritis [None]
  - General physical health deterioration [None]
  - Fatigue [None]
  - Infection [None]
  - Diabetes mellitus inadequate control [None]
  - Glycosylated haemoglobin increased [None]
  - Dyspnoea [None]
  - Gastrointestinal disorder [None]
  - Cognitive disorder [None]
